FAERS Safety Report 6413504-7 (Version None)
Quarter: 2009Q4

REPORT INFORMATION
  Report Type: 
  Country: None (occurrence: None)
  Receive Date: 20091026
  Receipt Date: 20091014
  Transmission Date: 20100525
  Serious: Yes (Other)
  Sender: FDA-Public Use
  Company Number: PHHY2009BR45282

PATIENT
  Age: 32 Year
  Sex: Female
  Weight: 70 kg

DRUGS (2)
  1. DICLOFENAC SODIUM [Suspect]
     Indication: MENSTRUAL DISORDER
     Dosage: 1 CAPSULE PER DAY
     Route: 048
     Dates: start: 20091013, end: 20091014
  2. OMEPRAZOLE [Concomitant]

REACTIONS (1)
  - HAEMATOCHEZIA [None]
